FAERS Safety Report 24189464 (Version 3)
Quarter: 2024Q4

REPORT INFORMATION
  Report Type: Report from Study
  Country: US (occurrence: US)
  Receive Date: 20240808
  Receipt Date: 20241004
  Transmission Date: 20250114
  Serious: Yes (Hospitalization)
  Sender: ASTELLAS
  Company Number: US-ASTELLAS-2024US022398

PATIENT
  Age: 81 Year
  Sex: Male

DRUGS (1)
  1. ENZALUTAMIDE [Suspect]
     Active Substance: ENZALUTAMIDE
     Indication: Prostate cancer
     Route: 048
     Dates: start: 20240801

REACTIONS (5)
  - Back pain [Recovering/Resolving]
  - Confusional state [Recovering/Resolving]
  - Mobility decreased [Recovering/Resolving]
  - Pain in extremity [Recovering/Resolving]
  - Paraesthesia [Unknown]

NARRATIVE: CASE EVENT DATE: 20240803
